FAERS Safety Report 23066825 (Version 1)
Quarter: 2023Q4

REPORT INFORMATION
  Report Type: Spontaneous
  Country: US (occurrence: US)
  Receive Date: 20231016
  Receipt Date: 20231016
  Transmission Date: 20240109
  Serious: Yes (Other)
  Sender: FDA-Public Use
  Company Number: US-AMGEN-USASP2023179774

PATIENT
  Sex: Male

DRUGS (3)
  1. REPATHA [Suspect]
     Active Substance: EVOLOCUMAB
     Indication: Product used for unknown indication
     Dosage: 140 MILLIGRAM, Q2WK
     Route: 065
  2. REPATHA [Suspect]
     Active Substance: EVOLOCUMAB
     Dosage: 420 MILLIGRAM, QMO
     Route: 065
  3. ZOCOR [Suspect]
     Active Substance: SIMVASTATIN
     Indication: Neuropathy peripheral
     Route: 065

REACTIONS (3)
  - Neuropathy peripheral [Unknown]
  - Depression [Unknown]
  - Low density lipoprotein decreased [Unknown]
